FAERS Safety Report 23302920 (Version 1)
Quarter: 2023Q4

REPORT INFORMATION
  Report Type: Spontaneous
  Country: US (occurrence: US)
  Receive Date: 20231215
  Receipt Date: 20231215
  Transmission Date: 20240110
  Serious: No
  Sender: FDA-Public Use
  Company Number: US-PRIMUS-2023-US-001234

PATIENT
  Age: 42 Year
  Sex: Female
  Weight: 86.18 kg

DRUGS (2)
  1. IMPOYZ [Suspect]
     Active Substance: CLOBETASOL PROPIONATE
     Indication: Dermatitis
     Dosage: APPLIED TO THE RIGHT FOREARM
     Route: 061
     Dates: start: 20230114, end: 20230114
  2. METFORMIN [Concomitant]
     Active Substance: METFORMIN HYDROCHLORIDE

REACTIONS (4)
  - Application site urticaria [Recovering/Resolving]
  - Application site pruritus [Recovering/Resolving]
  - Application site pain [Recovering/Resolving]
  - Application site swelling [Recovering/Resolving]

NARRATIVE: CASE EVENT DATE: 20230114
